FAERS Safety Report 5987850-5 (Version None)
Quarter: 2008Q4

REPORT INFORMATION
  Report Type: 
  Country: None (occurrence: None)
  Receive Date: 20081209
  Receipt Date: 20081120
  Transmission Date: 20090506
  Serious: No
  Sender: FDA-Public Use
  Company Number: US-BAYER-200839140NA

PATIENT
  Sex: Female

DRUGS (2)
  1. CLIMARA PRO [Suspect]
     Indication: DRUG USE FOR UNKNOWN INDICATION
     Route: 062
  2. CLIMARA PRO [Suspect]
     Route: 062

REACTIONS (3)
  - HOT FLUSH [None]
  - INSOMNIA [None]
  - PRODUCT QUALITY ISSUE [None]
